FAERS Safety Report 21375707 (Version 1)
Quarter: 2022Q3

REPORT INFORMATION
  Report Type: Other
  Country: GB (occurrence: GB)
  Receive Date: 20220926
  Receipt Date: 20220926
  Transmission Date: 20221026
  Serious: Yes (Disabling, Other)
  Sender: FDA-Public Use
  Company Number: GB-MHRA-MED-202209130632490970-WYRDB

PATIENT

DRUGS (1)
  1. ROSUVASTATIN CALCIUM [Suspect]
     Active Substance: ROSUVASTATIN CALCIUM
     Indication: Intermittent claudication
     Dosage: 10 MILLIGRAM, OD
     Route: 065
     Dates: start: 20210801, end: 20220217

REACTIONS (11)
  - Pain [Not Recovered/Not Resolved]
  - Limb discomfort [Unknown]
  - Groin pain [Unknown]
  - Chromaturia [Unknown]
  - Inflammatory marker increased [Unknown]
  - Fluid retention [Unknown]
  - Urinary tract infection [Unknown]
  - Body temperature increased [Unknown]
  - Muscular weakness [Unknown]
  - Asthenia [Unknown]
  - Blood urine present [Unknown]

NARRATIVE: CASE EVENT DATE: 20220217
